FAERS Safety Report 13612013 (Version 1)
Quarter: 2017Q2

REPORT INFORMATION
  Report Type: Spontaneous
  Country: US (occurrence: US)
  Receive Date: 20170605
  Receipt Date: 20170605
  Transmission Date: 20170830
  Serious: Yes (Hospitalization)
  Sender: FDA-Public Use
  Company Number: None

PATIENT
  Age: 76 Year
  Sex: Male

DRUGS (1)
  1. HEPARIN [Suspect]
     Active Substance: HEPARIN SODIUM
     Dates: start: 20161226, end: 20170102

REACTIONS (8)
  - Anaemia [None]
  - Metabolic acidosis [None]
  - Thrombocytopenia [None]
  - Deep vein thrombosis [None]
  - Lower gastrointestinal haemorrhage [None]
  - Gastric haemorrhage [None]
  - Sepsis [None]
  - Acute kidney injury [None]

NARRATIVE: CASE EVENT DATE: 20170111
